FAERS Safety Report 14181229 (Version 1)
Quarter: 2017Q4

REPORT INFORMATION
  Report Type: Spontaneous
  Country: US (occurrence: US)
  Receive Date: 20171112
  Receipt Date: 20171112
  Transmission Date: 20180321
  Serious: No
  Sender: FDA-Public Use
  Company Number: US-BAUSCH-BL-2017-008395

PATIENT
  Age: 31 Year
  Sex: Female

DRUGS (3)
  1. ACANYA [Suspect]
     Active Substance: BENZOYL PEROXIDE\CLINDAMYCIN PHOSPHATE
     Route: 061
     Dates: start: 201703
  2. ACANYA [Suspect]
     Active Substance: BENZOYL PEROXIDE\CLINDAMYCIN PHOSPHATE
     Indication: ACNE
     Route: 061
     Dates: start: 2016
  3. CETAPHIL MOISTURIZER (COSMETIC) [Suspect]
     Active Substance: COSMETICS
     Indication: THERAPEUTIC SKIN CARE TOPICAL
     Dosage: ONCE NIGHTLY
     Route: 061
     Dates: start: 201703

REACTIONS (2)
  - Acne [Not Recovered/Not Resolved]
  - Acne [None]

NARRATIVE: CASE EVENT DATE: 2017
